FAERS Safety Report 10241972 (Version 1)
Quarter: 2014Q1

REPORT INFORMATION
  Report Type: Spontaneous
  Country: US (occurrence: None)
  Receive Date: 20140306
  Receipt Date: 20140306
  Transmission Date: 20141002
  Serious: Yes (Other)
  Sender: FDA-Public Use
  Company Number: 163-21880-13061149

PATIENT
  Age: 83 Year
  Sex: Female
  Weight: 68.5 kg

DRUGS (12)
  1. REVLIMID (LENALIDOMIDE) (CAPSULES) [Suspect]
     Indication: PLASMA CELL MYELOMA
     Dosage: 25 MG, 21 IN 21 D, PO
     Route: 048
     Dates: start: 201101
  2. CENTRUM SILVER [Concomitant]
  3. CALCIUM 600 + D3 SOFTGEL [Concomitant]
  4. POTASSIUM CL (POTSSIUM CHLORIDE) [Concomitant]
  5. ACYCLOVIR (ACICLOVIR) (ACICLOVIR) [Concomitant]
  6. GAMMAGARD (IMMUNOGLOBULIN HUMAN NOMAL) [Concomitant]
  7. VELCADE (BORTEZOMIB) [Concomitant]
  8. NORVASC (AMLODIPINE BESILATE) [Concomitant]
  9. AMBIEN (ZOLPIDEM TARTRATE) [Concomitant]
  10. HYDROXYZINE [Concomitant]
  11. ZYRTEC (CETIRIZINE HYROCHLORIDE) [Concomitant]
  12. TRIAMTERENE HCTZ (DYAZIDE) [Concomitant]

REACTIONS (1)
  - Lactose intolerance [None]
